FAERS Safety Report 7615595-4 (Version None)
Quarter: 2011Q3

REPORT INFORMATION
  Report Type: 
  Country: None (occurrence: None)
  Receive Date: 20110708
  Receipt Date: 20110630
  Transmission Date: 20111222
  Serious: Yes (Hospitalization, Other)
  Sender: FDA-Public Use
  Company Number: TPA2011A03378

PATIENT
  Age: 75 Year
  Sex: Male
  Weight: 234 kg

DRUGS (12)
  1. ACTOS [Suspect]
     Indication: HYPERGLYCAEMIA
     Dosage: 45 MG, 1 IN 1 D, PER ORAL, 30 MG, 1 IN 1 D, 45 MG, 1 IN 1 D
     Route: 048
     Dates: start: 20050101, end: 20080101
  2. ACTOS [Suspect]
     Indication: HYPERGLYCAEMIA
     Dosage: 45 MG, 1 IN 1 D, PER ORAL, 30 MG, 1 IN 1 D, 45 MG, 1 IN 1 D
     Route: 048
     Dates: start: 20080101, end: 20110620
  3. ACTOS [Suspect]
     Indication: HYPERGLYCAEMIA
     Dosage: 45 MG, 1 IN 1 D, PER ORAL, 30 MG, 1 IN 1 D, 45 MG, 1 IN 1 D
     Route: 048
     Dates: start: 20040101, end: 20050101
  4. SIMVASTATIN [Concomitant]
  5. COUMADIN [Concomitant]
  6. LEVEMIR [Concomitant]
  7. ASPRIRN (ACETYLSALICYLIC ACID) [Concomitant]
  8. NOVOLOG [Concomitant]
  9. ASPRIRN(ACETYLSALICYLIC ACID) [Concomitant]
  10. COREG CR (CARVEDILOL) [Concomitant]
  11. AVAPRO [Concomitant]
  12. AMIODACORE(AMIODARONE) [Concomitant]

REACTIONS (4)
  - ASTHENIA [None]
  - WEIGHT DECREASED [None]
  - BLADDER TRANSITIONAL CELL CARCINOMA [None]
  - PROSTATE CANCER [None]
